FAERS Safety Report 22652989 (Version 1)
Quarter: 2023Q2

REPORT INFORMATION
  Report Type: Spontaneous
  Country: US (occurrence: US)
  Receive Date: 20230629
  Receipt Date: 20230629
  Transmission Date: 20230721
  Serious: No
  Sender: FDA-Public Use
  Company Number: US-JNJFOC-20230648870

PATIENT
  Age: 60 Year
  Sex: Female
  Weight: 58.5 kg

DRUGS (6)
  1. TYLENOL [Suspect]
     Active Substance: ACETAMINOPHEN
     Indication: Headache
     Route: 065
     Dates: start: 2023
  2. REMODULIN [Concomitant]
     Active Substance: TREPROSTINIL
     Indication: Pulmonary arterial hypertension
     Dosage: 0.080 UG/KG (SELF FILL CASSETTE WITH 3 ML; RATE OF 36 MCL PER HOUR), CONTINUING
     Route: 058
     Dates: start: 20220210
  3. REMODULIN [Concomitant]
     Active Substance: TREPROSTINIL
     Dosage: 0.080 UG/KG,SP-FILLED WITH 3 ML PER CASSETTE; RATE OF 36 MCL/HR
     Route: 058
     Dates: start: 20230601
  4. ZYRTEC [Concomitant]
     Active Substance: CETIRIZINE HYDROCHLORIDE
     Indication: Seasonal allergy
     Route: 065
     Dates: start: 2023
  5. ZYRTEC [Concomitant]
     Active Substance: CETIRIZINE HYDROCHLORIDE
     Indication: Headache
  6. TADALAFIL [Concomitant]
     Active Substance: TADALAFIL
     Indication: Product used for unknown indication
     Route: 065

REACTIONS (1)
  - Drug ineffective [Unknown]

NARRATIVE: CASE EVENT DATE: 20230101
